FAERS Safety Report 6132409-2 (Version None)
Quarter: 2009Q1

REPORT INFORMATION
  Report Type: 
  Country: None (occurrence: None)
  Receive Date: 20090324
  Receipt Date: 20090312
  Transmission Date: 20090719
  Serious: Yes (Death)
  Sender: FDA-Public Use
  Company Number: WAES 0903USA01994

PATIENT
  Age: 80 Year
  Sex: Female
  Weight: 58.9676 kg

DRUGS (4)
  1. COZAAR [Suspect]
     Indication: ESSENTIAL HYPERTENSION
     Dosage: 50 MG/DAILY/PO
     Route: 048
     Dates: start: 20081112, end: 20090209
  2. TAB BLINDED THERAPY UNK [Suspect]
     Indication: ESSENTIAL HYPERTENSION
     Dosage: 1 DOSE/DAILY/PO
     Route: 048
     Dates: start: 20081210, end: 20090209
  3. ACETAMINOPHEN [Concomitant]
  4. ATORVASTATIN CALCIUM [Concomitant]

REACTIONS (7)
  - ATRIOVENTRICULAR BLOCK FIRST DEGREE [None]
  - BLOOD UREA INCREASED [None]
  - CARDIAC ARREST [None]
  - DIARRHOEA [None]
  - HYPOKALAEMIA [None]
  - LEFT VENTRICULAR HYPERTROPHY [None]
  - MYOCARDIAL INFARCTION [None]
